FAERS Safety Report 18130932 (Version 2)
Quarter: 2020Q3

REPORT INFORMATION
  Report Type: Report from Study
  Country: US (occurrence: US)
  Receive Date: 20200810
  Receipt Date: 20200821
  Transmission Date: 20201103
  Serious: Yes (Hospitalization, Other)
  Sender: FDA-Public Use
  Company Number: US-ACTELION-A-NJ2020-207956

PATIENT
  Sex: Male
  Weight: 99.77 kg

DRUGS (2)
  1. OPSUMIT [Suspect]
     Active Substance: MACITENTAN
     Indication: PULMONARY ARTERIAL HYPERTENSION
     Dosage: 10 MG, QD
     Route: 048
  2. ADCIRCA [Concomitant]
     Active Substance: TADALAFIL

REACTIONS (7)
  - Leukaemia [Not Recovered/Not Resolved]
  - Renal failure [Unknown]
  - Urinary tract infection [Unknown]
  - Plasma cell myeloma [Not Recovered/Not Resolved]
  - Dialysis [Unknown]
  - Blood calcium increased [Unknown]
  - Lymphoma [Not Recovered/Not Resolved]
